FAERS Safety Report 12680935 (Version 1)
Quarter: 2016Q3

REPORT INFORMATION
  Report Type: Spontaneous
  Country: US (occurrence: US)
  Receive Date: 20160824
  Receipt Date: 20160824
  Transmission Date: 20161109
  Serious: Yes (Other)
  Sender: FDA-Public Use
  Company Number: US-PFIZER INC-2016399004

PATIENT
  Sex: Female
  Weight: 69.39 kg

DRUGS (1)
  1. XELJANZ XR [Suspect]
     Active Substance: TOFACITINIB CITRATE
     Indication: RHEUMATOID ARTHRITIS
     Dosage: 11 MG, DAILY ( 1 WEEK AGO)
     Route: 048
     Dates: start: 201608

REACTIONS (4)
  - Nausea [Unknown]
  - Muscle spasms [Unknown]
  - Condition aggravated [Unknown]
  - Rheumatoid arthritis [Unknown]
